FAERS Safety Report 9363635 (Version 1)
Quarter: 2013Q2

REPORT INFORMATION
  Report Type: Spontaneous
  Country: KR (occurrence: KR)
  Receive Date: 20130624
  Receipt Date: 20130624
  Transmission Date: 20140414
  Serious: Yes (Other)
  Sender: FDA-Public Use
  Company Number: KR-ASTRAZENECA-2013SE47406

PATIENT
  Age: 23958 Day
  Sex: Female

DRUGS (1)
  1. ATACAND [Suspect]
     Route: 048
     Dates: start: 2011

REACTIONS (3)
  - Syncope [Unknown]
  - Vertigo [Unknown]
  - Angioedema [Unknown]
